FAERS Safety Report 11315391 (Version 3)
Quarter: 2015Q3

REPORT INFORMATION
  Report Type: Report from Study
  Country: US (occurrence: US)
  Receive Date: 20150728
  Receipt Date: 20150901
  Transmission Date: 20151125
  Serious: Yes (Other)
  Sender: FDA-Public Use
  Company Number: US-AMGEN-USASL2015074991

PATIENT
  Age: 66 Year
  Sex: Female

DRUGS (1)
  1. ENBREL [Suspect]
     Active Substance: ETANERCEPT
     Indication: RHEUMATOID ARTHRITIS
     Dosage: 50 MG, QWK
     Route: 065
     Dates: start: 2010

REACTIONS (14)
  - Fall [Unknown]
  - Pain in extremity [Recovering/Resolving]
  - Surgery [Unknown]
  - Arthralgia [Not Recovered/Not Resolved]
  - Gait disturbance [Unknown]
  - Urinary tract infection staphylococcal [Unknown]
  - Blister infected [Unknown]
  - Poor peripheral circulation [Unknown]
  - Joint stiffness [Unknown]
  - Skin lesion [Unknown]
  - Contusion [Unknown]
  - Impaired healing [Unknown]
  - Back pain [Not Recovered/Not Resolved]
  - Nephrolithiasis [Recovered/Resolved]

NARRATIVE: CASE EVENT DATE: 2012
